FAERS Safety Report 9538224 (Version 2)
Quarter: 2013Q3

REPORT INFORMATION
  Report Type: Spontaneous
  Country: IL (occurrence: IL)
  Receive Date: 20130920
  Receipt Date: 20130920
  Transmission Date: 20140515
  Serious: Yes (Other)
  Sender: FDA-Public Use
  Company Number: IL-009507513-1308ISR006041

PATIENT
  Sex: Female

DRUGS (1)
  1. NUVARING [Suspect]
     Dosage: UNK
     Dates: start: 201306

REACTIONS (3)
  - Abortion spontaneous [Unknown]
  - Incorrect drug administration duration [Unknown]
  - Unintended pregnancy [Recovered/Resolved]
